FAERS Safety Report 10344100 (Version 1)
Quarter: 2014Q3

REPORT INFORMATION
  Report Type: Report from Study
  Country: FR (occurrence: None)
  Receive Date: 20140724
  Receipt Date: 20140724
  Transmission Date: 20150326
  Serious: Yes (Death)
  Sender: FDA-Public Use
  Company Number: FR-2014-1442

PATIENT
  Age: 2 Month
  Sex: Female

DRUGS (12)
  1. CEFOTAXIME (CEFOTAXIME) [Concomitant]
  2. PARACETAMOL (PARACETAMOL) [Concomitant]
     Active Substance: ACETAMINOPHEN
  3. PENTOTHAL (THIOPENTAL SODIUM) [Concomitant]
  4. VITAMIN K2 (MENATETRENONE) [Concomitant]
  5. GARDENAL (PHENOBARBITAL) [Concomitant]
  6. PRODILANTIN (FOSPHENYTOIN SODIUM) [Concomitant]
  7. GEMCITABINE [Concomitant]
     Active Substance: GEMCITABINE\GEMCITABINE HYDROCHLORIDE
  8. SOLUMEDROL (METHYPREDNISOLONE SODIUM SUCCINATE) [Concomitant]
  9. VINCRISTINE (VINCRISTINE SULFATE) [Concomitant]
     Active Substance: VINCRISTINE SULFATE
  10. RIVOTRIL [Concomitant]
     Active Substance: CLONAZEPAM
  11. LOVENOX (ENOXAPRIN SODIUM) [Concomitant]
  12. CHLORHYDRATE DE PROPRANOLOL PIERRE FABRE DERMATOLOGIE (PROPRANOLOL) ORAL SOLUTION [Suspect]
     Active Substance: PROPRANOLOL HYDROCHLORIDE
     Indication: HAEMANGIOMA
     Route: 048
     Dates: start: 20130301, end: 20130306

REACTIONS (20)
  - Drug ineffective [None]
  - Deep vein thrombosis [None]
  - Bradycardia [None]
  - Off label use [None]
  - Pain [None]
  - Hydrocephalus [None]
  - Anaemia postoperative [None]
  - Intracranial pressure increased [None]
  - Thrombocytopenia [None]
  - Medical device complication [None]
  - Neonatal respiratory distress syndrome [None]
  - Skin lesion [None]
  - Apnoea neonatal [None]
  - Convulsion neonatal [None]
  - Lymphangioleiomyomatosis [None]
  - Haemangioma [None]
  - Hypotonia [None]
  - Condition aggravated [None]
  - Brain oedema [None]
  - Cardiac arrest [None]
